FAERS Safety Report 8900174 (Version 2)
Quarter: 2014Q4

REPORT INFORMATION
  Report Type: Report from Study
  Country: AR (occurrence: AR)
  Receive Date: 20121109
  Receipt Date: 20141103
  Transmission Date: 20150529
  Serious: Yes (Other)
  Sender: FDA-Public Use
  Company Number: PHHY2012AR102738

PATIENT
  Age: 69 Year
  Sex: Female

DRUGS (2)
  1. ONBREZ [Suspect]
     Active Substance: INDACATEROL
     Indication: EMPHYSEMA
     Dosage: 150 UG, QD
     Dates: start: 201209, end: 201210
  2. ONBREZ [Suspect]
     Active Substance: INDACATEROL
     Dosage: 300 UG, QD
     Route: 065

REACTIONS (2)
  - Musculoskeletal chest pain [Not Recovered/Not Resolved]
  - Rib fracture [Not Recovered/Not Resolved]

NARRATIVE: CASE EVENT DATE: 201210
